FAERS Safety Report 7353952-4 (Version None)
Quarter: 2011Q1

REPORT INFORMATION
  Report Type: 
  Country: None (occurrence: None)
  Receive Date: 20110315
  Receipt Date: 20110301
  Transmission Date: 20110831
  Serious: Yes (Other)
  Sender: FDA-Public Use
  Company Number: PHHY2011IE16658

PATIENT
  Sex: Female

DRUGS (1)
  1. RASILEZ [Suspect]
     Indication: HYPERTENSION

REACTIONS (2)
  - FALL [None]
  - HIP FRACTURE [None]
